FAERS Safety Report 5229053-8 (Version None)
Quarter: 2007Q1

REPORT INFORMATION
  Report Type: 
  Country: None (occurrence: None)
  Receive Date: 20061201
  Receipt Date: 20061109
  Transmission Date: 20070707
  Serious: No
  Sender: FDA-Public Use
  Company Number: US200608000636

PATIENT
  Age: 78 Year
  Sex: Female

DRUGS (7)
  1. CYMBALTA [Suspect]
     Indication: NERVOUS SYSTEM DISORDER
     Dosage: SEE IMAGE
     Route: 048
     Dates: start: 20060201, end: 20060723
  2. CYMBALTA [Suspect]
     Indication: NERVOUS SYSTEM DISORDER
     Dosage: SEE IMAGE
     Route: 048
     Dates: start: 20060729
  3. PREGABALIN (PREGABALIN) [Concomitant]
  4. TOPROL XL (METOPROL SUCCINATE) [Concomitant]
  5. NEXIUM [Concomitant]
  6. POTASSIUM (POTASSIUM) [Concomitant]
  7. METFORMIN HCL [Concomitant]

REACTIONS (7)
  - BACK INJURY [None]
  - DIZZINESS [None]
  - EAR DISCOMFORT [None]
  - FALL [None]
  - MIGRAINE [None]
  - NAUSEA [None]
  - PAIN [None]
